FAERS Safety Report 26084386 (Version 3)
Quarter: 2025Q4

REPORT INFORMATION
  Report Type: Spontaneous
  Country: US (occurrence: US)
  Receive Date: 20251124
  Receipt Date: 20251231
  Transmission Date: 20260118
  Serious: No
  Sender: PFIZER
  Company Number: US-PFIZER INC-202500229299

PATIENT
  Age: 12 Year
  Sex: Female
  Weight: 35.38 kg

DRUGS (1)
  1. NGENLA [Suspect]
     Active Substance: SOMATROGON-GHLA
     Dosage: 22 MG

REACTIONS (2)
  - Injection site pruritus [Recovered/Resolved]
  - Injection site mass [Recovered/Resolved]
